FAERS Safety Report 5923472-X (Version None)
Quarter: 2008Q4

REPORT INFORMATION
  Report Type: 
  Country: None (occurrence: None)
  Receive Date: 20081020
  Receipt Date: 20081013
  Transmission Date: 20090506
  Serious: Yes (Other)
  Sender: FDA-Public Use
  Company Number: US-BAYER-200813595BCC

PATIENT
  Age: 73 Year
  Sex: Female
  Weight: 64 kg

DRUGS (8)
  1. ALEVE [Suspect]
     Indication: ANALGESIA
     Dosage: AS USED: 220 MG  UNIT DOSE: 220 MG
     Route: 048
     Dates: start: 20080903
  2. BACTRIM [Concomitant]
  3. CLONIDINE [Concomitant]
  4. CRESTOR [Concomitant]
  5. CITRUCEL [Concomitant]
  6. CENTRUM MULTIVITAMIN [Concomitant]
  7. CO Q10 [Concomitant]
  8. CITRACAL [Concomitant]

REACTIONS (6)
  - BURNING SENSATION [None]
  - DYSPNOEA [None]
  - HYPERSENSITIVITY [None]
  - OEDEMA PERIPHERAL [None]
  - PRURITUS [None]
  - SWELLING FACE [None]
